FAERS Safety Report 10348548 (Version 1)
Quarter: 2014Q3

REPORT INFORMATION
  Report Type: Spontaneous
  Country: CA (occurrence: None)
  Receive Date: 20140725
  Receipt Date: 20140725
  Transmission Date: 20150326
  Serious: Yes (Other)
  Sender: FDA-Public Use
  Company Number: 2014CA00846

PATIENT
  Sex: Female

DRUGS (6)
  1. G-CSF (GRANULOCYTE COLONY-STIMULATING FACTOR) [Concomitant]
  2. PEG-G-CSF (PEGYLATED GRANLOCYTE COLONY-STIMULATING FACTOR) [Concomitant]
  3. EPIRUBICIN (EPIRUBICIN HYDROCHLORIDE) INJECTION [Suspect]
     Active Substance: EPIRUBICIN
     Indication: BREAST CANCER
  4. CYCLOPHOSPHAMIDE (CYCLOPHOSPHAMIDE) [Suspect]
     Active Substance: CYCLOPHOSPHAMIDE
     Indication: BREAST CANCER
  5. DOCETAXEL (DOCETAXEL) [Suspect]
     Active Substance: DOCETAXEL
     Indication: BREAST CANCER
  6. FLUROURACIL (FLUROURACIL) (FLUROURACIL) [Suspect]
     Active Substance: FLUOROURACIL
     Indication: BREAST CANCER

REACTIONS (1)
  - Neurotoxicity [None]
